FAERS Safety Report 7310780-3 (Version None)
Quarter: 2011Q1

REPORT INFORMATION
  Report Type: 
  Country: None (occurrence: None)
  Receive Date: 20110211
  Receipt Date: 20101214
  Transmission Date: 20110831
  Serious: Yes (Hospitalization, Other)
  Sender: FDA-Public Use
  Company Number: 2010P1003308

PATIENT
  Age: 59 Year
  Sex: Male
  Weight: 79.3795 kg

DRUGS (10)
  1. I-BRIGHT VITAMINS [Concomitant]
  2. CINNAMON [Concomitant]
  3. LAMOTRIGINE [Suspect]
     Indication: BIPOLAR DISORDER
     Dosage: (150 MG; QAM) (100 MG; QPM)
     Dates: start: 20080101, end: 20101201
  4. LAMOTRIGINE [Suspect]
     Indication: BIPOLAR DISORDER
     Dosage: (150 MG; QAM) (100 MG; QPM)
     Dates: start: 20080101, end: 20101201
  5. LAMOTRIGINE [Suspect]
     Indication: BIPOLAR DISORDER
     Dosage: (150 MG; QAM) (100 MG; QPM)
     Dates: start: 20080101, end: 20101201
  6. LAMOTRIGINE [Suspect]
     Indication: BIPOLAR DISORDER
     Dosage: (150 MG; QAM) (100 MG; QPM)
     Dates: start: 20080101, end: 20101201
  7. FLAX SEED OIL [Concomitant]
  8. TURMERIC [Concomitant]
  9. VITMAIN B COMPLEX [Concomitant]
  10. VITAMIN E [Concomitant]

REACTIONS (5)
  - CONVULSION [None]
  - SEXUAL DYSFUNCTION [None]
  - TREMOR [None]
  - DYSGRAPHIA [None]
  - BLOOD PRESSURE INCREASED [None]
